FAERS Safety Report 12950586 (Version 1)
Quarter: 2016Q4

REPORT INFORMATION
  Report Type: Report from Study
  Country: CA (occurrence: CA)
  Receive Date: 20161117
  Receipt Date: 20161117
  Transmission Date: 20170207
  Serious: Yes (Other)
  Sender: FDA-Public Use
  Company Number: CA-AMGEN-CANSL2016156089

PATIENT
  Age: 60 Year
  Sex: Male

DRUGS (3)
  1. ENBREL [Suspect]
     Active Substance: ETANERCEPT
     Indication: ANKYLOSING SPONDYLITIS
     Dosage: 50 MG, QWK
     Route: 065
     Dates: start: 20160926
  2. ADVIL [Concomitant]
     Active Substance: IBUPROFEN
     Dosage: UNK, LESS OCCASIONAL
  3. TYLENOL [Concomitant]
     Active Substance: ACETAMINOPHEN
     Dosage: UNK, OCCASIONAL

REACTIONS (6)
  - Haematochezia [Unknown]
  - Impaired healing [Unknown]
  - Insomnia [Unknown]
  - Injection site reaction [Recovering/Resolving]
  - Fatigue [Unknown]
  - Limb injury [Unknown]

NARRATIVE: CASE EVENT DATE: 2016
